FAERS Safety Report 5767131-5 (Version None)
Quarter: 2008Q2

REPORT INFORMATION
  Report Type: 
  Country: None (occurrence: None)
  Receive Date: 20080609
  Receipt Date: 20080527
  Transmission Date: 20081010
  Serious: Yes (Hospitalization)
  Sender: FDA-Public Use
  Company Number: 2008BI012576

PATIENT
  Age: 44 Year
  Sex: Female

DRUGS (10)
  1. TYSABRI [Suspect]
     Indication: MULTIPLE SCLEROSIS
     Dosage: 300 MG; QM; IV
     Route: 042
     Dates: start: 20080416
  2. BACLOFEN [Concomitant]
  3. TIZANIDINE HCL [Concomitant]
  4. FLEXERIL [Concomitant]
  5. LEXAPRO [Concomitant]
  6. ENABLEX [Concomitant]
  7. SYNTHROID [Concomitant]
  8. AMITIZA [Concomitant]
  9. LACTULOSE [Concomitant]
  10. SODIUM CHLORIDE [Concomitant]

REACTIONS (1)
  - THROMBOSIS [None]
